FAERS Safety Report 9705821 (Version 2)
Quarter: 2013Q4

REPORT INFORMATION
  Report Type: Spontaneous
  Country: US (occurrence: US)
  Receive Date: 20131122
  Receipt Date: 20131122
  Transmission Date: 20140711
  Serious: Yes (Other)
  Sender: FDA-Public Use
  Company Number: US-GILEAD-2008-0017695

PATIENT
  Age: 67 Year
  Sex: Female
  Weight: 60.78 kg

DRUGS (7)
  1. LETAIRIS [Suspect]
     Indication: PULMONARY ARTERIAL HYPERTENSION
     Route: 048
     Dates: start: 20080606, end: 20080723
  2. ZOCOR [Concomitant]
     Route: 048
     Dates: end: 20080723
  3. IMURAN [Concomitant]
     Route: 048
     Dates: start: 20080401, end: 20080723
  4. EVISTA [Concomitant]
     Route: 048
  5. MULTI [Concomitant]
     Route: 048
  6. PREDNISONE [Concomitant]
     Route: 048
     Dates: start: 200802
  7. OXYGEN [Concomitant]
     Route: 055

REACTIONS (1)
  - Liver function test abnormal [Recovered/Resolved]
